FAERS Safety Report 7776282-5 (Version None)
Quarter: 2011Q3

REPORT INFORMATION
  Report Type: 
  Country: None (occurrence: None)
  Receive Date: 20110921
  Receipt Date: 20110921
  Transmission Date: 20111222
  Serious: Yes (Other)
  Sender: FDA-Public Use
  Company Number: None

PATIENT
  Sex: Male
  Weight: 65.7716 kg

DRUGS (5)
  1. VERSED [Suspect]
  2. DEPO-MEDROL [Suspect]
  3. OMNIPAQUE 140 [Suspect]
  4. BUPIVACAINE HCL [Suspect]
  5. LIDOCAINE [Suspect]

REACTIONS (7)
  - ACTIVITIES OF DAILY LIVING IMPAIRED [None]
  - MUSCULOSKELETAL PAIN [None]
  - MOBILITY DECREASED [None]
  - SLEEP DISORDER [None]
  - ROTATOR CUFF SYNDROME [None]
  - NO THERAPEUTIC RESPONSE [None]
  - MYALGIA [None]
